FAERS Safety Report 9699472 (Version 2)
Quarter: 2013Q4

REPORT INFORMATION
  Report Type: Spontaneous
  Country: US (occurrence: US)
  Receive Date: 20131120
  Receipt Date: 20131120
  Transmission Date: 20140711
  Serious: Yes (Hospitalization, Other)
  Sender: FDA-Public Use
  Company Number: US-TEVA-357949USA

PATIENT
  Age: 33 Year
  Sex: Female
  Weight: 56.75 kg

DRUGS (1)
  1. PARAGARD 380A [Suspect]
     Indication: CONTRACEPTION
     Route: 015
     Dates: start: 20120109, end: 20120826

REACTIONS (9)
  - Vaginal haemorrhage [Recovered/Resolved]
  - Nausea [Recovered/Resolved]
  - Menstruation delayed [Not Recovered/Not Resolved]
  - Pregnancy [Recovered/Resolved with Sequelae]
  - Uterine perforation [Recovered/Resolved with Sequelae]
  - Abortion spontaneous [Recovered/Resolved]
  - Drug ineffective [Unknown]
  - Uterine spasm [Recovered/Resolved]
  - Menorrhagia [Recovered/Resolved]
